FAERS Safety Report 9672225 (Version 2)
Quarter: 2013Q4

REPORT INFORMATION
  Report Type: Report from Study
  Country: JP (occurrence: JP)
  Receive Date: 20131106
  Receipt Date: 20131106
  Transmission Date: 20140711
  Serious: Yes (Hospitalization)
  Sender: FDA-Public Use
  Company Number: JP-SA-THYM-1003559

PATIENT
  Age: 78 Year
  Sex: Male
  Weight: 54 kg

DRUGS (13)
  1. THYMOGLOBULINE [Suspect]
     Indication: APLASTIC ANAEMIA
     Dosage: 150 MG, QD
     Route: 065
     Dates: start: 20120106, end: 20120110
  2. METHYLPREDNISOLONE SODIUM SUCCINATE [Concomitant]
     Indication: PROPHYLAXIS
     Dosage: UNK
     Dates: start: 20120106, end: 20120116
  3. PREDNISOLONE [Concomitant]
     Indication: APLASTIC ANAEMIA
     Dosage: UNK
     Dates: start: 20120117, end: 20120305
  4. CICLOSPORIN [Concomitant]
     Indication: APLASTIC ANAEMIA
     Dosage: UNK
     Dates: start: 20120220, end: 20120305
  5. MICAFUNGIN SODIUM [Concomitant]
     Indication: FEBRILE NEUTROPENIA
     Dosage: UNK
     Dates: start: 20111227, end: 20111228
  6. MICAFUNGIN SODIUM [Concomitant]
     Indication: FEBRILE NEUTROPENIA
     Dosage: UNK
     Dates: start: 20120111, end: 20120120
  7. MAGLAX [Concomitant]
     Indication: CONSTIPATION
     Dates: start: 20120102, end: 20120305
  8. CEFEPIME HYDROCHLORIDE [Concomitant]
     Indication: FEBRILE NEUTROPENIA
     Dosage: UNK
     Route: 065
     Dates: start: 20111227, end: 20120105
  9. CEFEPIME HYDROCHLORIDE [Concomitant]
     Indication: FEBRILE NEUTROPENIA
     Dosage: UNK
     Route: 065
     Dates: start: 20120127, end: 20120209
  10. FILGRASTIM [Concomitant]
     Indication: APLASTIC ANAEMIA
     Dosage: UNK
     Dates: start: 20120106, end: 20120204
  11. ZOPICLONE [Concomitant]
     Indication: INSOMNIA
     Dosage: UNK
     Dates: start: 20111226, end: 20120305
  12. PARACETAMOL [Concomitant]
     Indication: PREMEDICATION
     Dosage: UNK
     Dates: start: 20120112, end: 20120209
  13. POVIDONE-IODINE [Concomitant]
     Indication: PROPHYLAXIS
     Dosage: UNK
     Dates: start: 20111229, end: 20120107

REACTIONS (2)
  - Stomatitis [Recovered/Resolved]
  - Pneumonia bacterial [Recovered/Resolved]
